FAERS Safety Report 25613526 (Version 1)
Quarter: 2025Q3

REPORT INFORMATION
  Report Type: Spontaneous
  Country: US (occurrence: US)
  Receive Date: 20250728
  Receipt Date: 20250728
  Transmission Date: 20251021
  Serious: No
  Sender: SANDOZ
  Company Number: US-SANDOZ-SDZ2023US000611

PATIENT
  Sex: Female

DRUGS (5)
  1. CLOBETASOL [Suspect]
     Active Substance: CLOBETASOL
     Indication: Psoriasis
     Route: 061
  2. FLUOCINONIDE [Suspect]
     Active Substance: FLUOCINONIDE
     Indication: Psoriasis
     Route: 061
  3. FOLIC ACID [Suspect]
     Active Substance: FOLIC ACID
     Indication: Psoriasis
     Route: 065
  4. METHOTREXATE [Suspect]
     Active Substance: METHOTREXATE
     Indication: Product used for unknown indication
     Route: 065
  5. HALOBETASOL [Suspect]
     Active Substance: HALOBETASOL
     Indication: Product used for unknown indication
     Route: 061

REACTIONS (2)
  - Drug ineffective [Unknown]
  - Exposure during pregnancy [Unknown]
